FAERS Safety Report 8267499-4 (Version None)
Quarter: 2012Q2

REPORT INFORMATION
  Report Type: 
  Country: None (occurrence: None)
  Receive Date: 20120405
  Receipt Date: 20120405
  Transmission Date: 20120825
  Serious: Yes (Other)
  Sender: FDA-Public Use
  Company Number: None

PATIENT
  Sex: Male
  Weight: 71.6683 kg

DRUGS (1)
  1. SIMVASTATIN [Suspect]
     Indication: HYPERCHOLESTEROLAEMIA
     Dosage: ONE TABLET DAILY BY MOUTH
     Route: 048
     Dates: start: 20120101, end: 20120201

REACTIONS (3)
  - FATIGUE [None]
  - MYALGIA [None]
  - PRODUCT SUBSTITUTION ISSUE [None]
